FAERS Safety Report 18334405 (Version 7)
Quarter: 2020Q4

REPORT INFORMATION
  Report Type: Other
  Country: DE (occurrence: DE)
  Receive Date: 20201001
  Receipt Date: 20201203
  Transmission Date: 20210113
  Serious: Yes (Other)
  Sender: FDA-Public Use
  Company Number: DE-ROCHE-2448845

PATIENT
  Age: 30 Year
  Sex: Female

DRUGS (9)
  1. OCREVUS [Suspect]
     Active Substance: OCRELIZUMAB
     Route: 042
     Dates: start: 20191031
  2. FENISTIL [Concomitant]
     Active Substance: DIMETHINDENE
  3. DESOGESTREL [Concomitant]
     Active Substance: DESOGESTREL
     Indication: CONTRACEPTION
  4. DEKRISTOL [Concomitant]
     Active Substance: CHOLECALCIFEROL
  5. IBUPROFEN. [Concomitant]
     Active Substance: IBUPROFEN
  6. BIOTIN [Concomitant]
     Active Substance: BIOTIN
  7. OCREVUS [Suspect]
     Active Substance: OCRELIZUMAB
     Indication: RELAPSING-REMITTING MULTIPLE SCLEROSIS
     Dosage: SUBSEQUENT DOSE: 31/OCT/2019.
     Route: 042
     Dates: start: 20191017, end: 20191031
  8. OCREVUS [Suspect]
     Active Substance: OCRELIZUMAB
     Route: 042
     Dates: start: 20200514
  9. OCREVUS [Suspect]
     Active Substance: OCRELIZUMAB
     Route: 042
     Dates: start: 20201029

REACTIONS (37)
  - Skin disorder [Recovered/Resolved]
  - Contusion [Recovered/Resolved]
  - Gait disturbance [Recovered/Resolved]
  - Abdominal pain lower [Recovered/Resolved]
  - Ear pain [Recovered/Resolved]
  - Sciatica [Not Recovered/Not Resolved]
  - Paraesthesia [Recovered/Resolved]
  - Asthenia [Recovered/Resolved]
  - Dysphonia [Recovered/Resolved]
  - Arthralgia [Recovered/Resolved]
  - Nasopharyngitis [Recovered/Resolved]
  - Ligament sprain [Recovered/Resolved]
  - Dysarthria [Recovered/Resolved]
  - Cough [Recovered/Resolved]
  - Sleep disorder [Recovered/Resolved]
  - Pharyngitis [Recovered/Resolved]
  - Diarrhoea [Recovered/Resolved]
  - Spondylitis [Recovering/Resolving]
  - Fatigue [Recovered/Resolved]
  - Oral herpes [Recovered/Resolved]
  - Nausea [Recovered/Resolved]
  - Vomiting [Recovered/Resolved]
  - Back pain [Recovered/Resolved]
  - Headache [Recovered/Resolved]
  - Fatigue [Not Recovered/Not Resolved]
  - Fall [Unknown]
  - Abdominal pain [Recovered/Resolved]
  - Oropharyngeal pain [Recovered/Resolved]
  - Hypoaesthesia [Recovering/Resolving]
  - Limb injury [Recovered/Resolved]
  - Spinal anaesthesia [Recovered/Resolved]
  - Haemarthrosis [Recovered/Resolved]
  - Dyspnoea [Recovered/Resolved]
  - Migraine [Recovered/Resolved]
  - Nasal oedema [Recovered/Resolved]
  - Back pain [Recovered/Resolved]
  - Sinusitis [Recovered/Resolved]

NARRATIVE: CASE EVENT DATE: 20191017
